FAERS Safety Report 8103178-1 (Version None)
Quarter: 2012Q1

REPORT INFORMATION
  Report Type: 
  Country: None (occurrence: None)
  Receive Date: 20120201
  Receipt Date: 20120124
  Transmission Date: 20120608
  Serious: No
  Sender: FDA-Public Use
  Company Number: US-JNJFOC-20120111976

PATIENT
  Age: 3 Decade
  Sex: Male

DRUGS (1)
  1. INVEGA SUSTENNA [Suspect]
     Indication: SCHIZOPHRENIA
     Route: 030
     Dates: start: 20110701

REACTIONS (4)
  - UNDERDOSE [None]
  - ACCIDENTAL EXPOSURE [None]
  - DEVICE LEAKAGE [None]
  - WEIGHT INCREASED [None]
